FAERS Safety Report 7840801 (Version 3)
Quarter: 2013Q2

REPORT INFORMATION
  Report Type: Spontaneous
  Country: IT (occurrence: IT)
  Receive Date: 20110304
  Receipt Date: 20130410
  Transmission Date: 20140414
  Serious: Yes (Hospitalization)
  Sender: FDA-Public Use
  Company Number: IT-BRISTOL-MYERS SQUIBB COMPANY-15583321

PATIENT
  Age: 55 Year
  Sex: Female

DRUGS (8)
  1. GLUCOPHAGE [Suspect]
     Indication: DIABETES MELLITUS
     Dosage: STRENGTH GLUCOPHAGE 1000 MG
     Route: 048
     Dates: start: 20060101, end: 20101207
  2. BYETTA PEN DISPOSABLE [Suspect]
     Indication: DIABETES MELLITUS
     Dosage: 1.2 ML
     Route: 058
     Dates: start: 20060101, end: 20101207
  3. EUTHYROX [Concomitant]
     Indication: HYPOTHYROIDISM
     Route: 048
  4. COAPROVEL [Concomitant]
     Indication: HYPERTENSION
     Dosage: 1 DF =150/12.5 MG
     Route: 048
  5. EFFEXOR [Concomitant]
     Route: 048
  6. INDERAL [Concomitant]
     Dosage: STRENGTH 40 MG
     Route: 048
  7. PARIET [Concomitant]
     Dosage: STRENGTH 20 MG
     Route: 048
  8. FEDRA [Concomitant]
     Dosage: 1 DF= .075 MG +.002 MG
     Route: 048

REACTIONS (5)
  - Lactic acidosis [Not Recovered/Not Resolved]
  - Renal failure [Not Recovered/Not Resolved]
  - Hyperkalaemia [Not Recovered/Not Resolved]
  - Diarrhoea [Not Recovered/Not Resolved]
  - Vomiting [Not Recovered/Not Resolved]
